FAERS Safety Report 6276043-2 (Version None)
Quarter: 2009Q3

REPORT INFORMATION
  Report Type: 
  Country: None (occurrence: None)
  Receive Date: 20090722
  Receipt Date: 20090715
  Transmission Date: 20100115
  Serious: Yes (Hospitalization, Other)
  Sender: FDA-Public Use
  Company Number: US-BIOGENIDEC-2008BI017403

PATIENT
  Age: 39 Year
  Sex: Female
  Weight: 104 kg

DRUGS (1)
  1. TYSABRI [Suspect]
     Indication: MULTIPLE SCLEROSIS
     Route: 042
     Dates: start: 20071115

REACTIONS (4)
  - FEELING ABNORMAL [None]
  - NEUTROPHIL COUNT DECREASED [None]
  - SKIN INFECTION [None]
  - THYROID CANCER [None]
